FAERS Safety Report 5895444-5 (Version None)
Quarter: 2008Q3

REPORT INFORMATION
  Report Type: 
  Country: None (occurrence: None)
  Receive Date: 20080924
  Receipt Date: 20080915
  Transmission Date: 20090109
  Serious: Yes (Other)
  Sender: FDA-Public Use
  Company Number: FI-AVENTIS-200818792GDDC

PATIENT
  Age: 24 Year
  Sex: Female

DRUGS (5)
  1. ARAVA [Suspect]
     Indication: RHEUMATOID ARTHRITIS
     Route: 048
     Dates: start: 20080101
  2. METHOTREXATE [Suspect]
     Indication: RHEUMATOID ARTHRITIS
     Dosage: DOSE: UNK
     Dates: start: 20080212, end: 20080327
  3. HUMIRA [Suspect]
     Indication: RHEUMATOID ARTHRITIS
     Dosage: DOSE: UNK
     Dates: start: 20080804
  4. REUMACON [Suspect]
     Indication: RHEUMATOID ARTHRITIS
     Dates: start: 20080804
  5. PREDNISOLON [Concomitant]
     Indication: RHEUMATOID ARTHRITIS
     Route: 048
     Dates: start: 20080212

REACTIONS (3)
  - ALANINE AMINOTRANSFERASE INCREASED [None]
  - EYE PRURITUS [None]
  - RASH [None]
